FAERS Safety Report 9874437 (Version 2)
Quarter: 2014Q3

REPORT INFORMATION
  Report Type: Spontaneous
  Country: BR (occurrence: BR)
  Receive Date: 20140206
  Receipt Date: 20140901
  Transmission Date: 20150326
  Serious: Yes (Hospitalization)
  Sender: FDA-Public Use
  Company Number: BR-BIOGENIDEC-2014BI011403

PATIENT
  Age: 50 Year
  Sex: Female

DRUGS (1)
  1. AVONEX [Suspect]
     Active Substance: INTERFERON BETA-1A
     Indication: MULTIPLE SCLEROSIS
     Route: 030
     Dates: start: 201201, end: 201401

REACTIONS (15)
  - Convulsion [Recovered/Resolved]
  - General physical health deterioration [Unknown]
  - Malaise [Unknown]
  - Vomiting [Unknown]
  - Influenza like illness [Unknown]
  - Multiple sclerosis relapse [Unknown]
  - Neck pain [Unknown]
  - Cardiac arrest [Unknown]
  - Blood pressure increased [Unknown]
  - Speech disorder [Unknown]
  - Fatigue [Unknown]
  - Cerebrovascular accident [Recovered/Resolved]
  - Syncope [Unknown]
  - Musculoskeletal disorder [Unknown]
  - Memory impairment [Unknown]

NARRATIVE: CASE EVENT DATE: 2012
